FAERS Safety Report 13046389 (Version 2)
Quarter: 2017Q2

REPORT INFORMATION
  Report Type: Spontaneous
  Country: AU (occurrence: AU)
  Receive Date: 20161220
  Receipt Date: 20170608
  Transmission Date: 20170830
  Serious: Yes (Death)
  Sender: FDA-Public Use
  Company Number: AU-BAYER-2016-235180

PATIENT
  Age: 33 Year
  Sex: Female

DRUGS (14)
  1. AMPHOTERICIN B, LIPOSOME [Concomitant]
     Active Substance: AMPHOTERICIN B
  2. TEMOZOLOMIDE. [Concomitant]
     Active Substance: TEMOZOLOMIDE
     Dosage: UNK
     Dates: start: 20150508, end: 20150512
  3. ALLOPURINOL. [Concomitant]
     Active Substance: ALLOPURINOL
  4. AZACITIDINE. [Concomitant]
     Active Substance: AZACITIDINE
     Dosage: UNK
     Dates: start: 20150701, end: 20150707
  5. VALACICLOVIR [Concomitant]
     Active Substance: VALACYCLOVIR HYDROCHLORIDE
  6. VANCOMYCIN [Concomitant]
     Active Substance: VANCOMYCIN
  7. PANTOPRAZOLE [Concomitant]
     Active Substance: PANTOPRAZOLE
  8. CISPLATIN. [Concomitant]
     Active Substance: CISPLATIN
  9. CEFEPIME [Concomitant]
     Active Substance: CEFEPIME HYDROCHLORIDE
  10. CIPROFLOXACIN. [Concomitant]
     Active Substance: CIPROFLOXACIN
  11. NEXAVAR [Suspect]
     Active Substance: SORAFENIB
     Indication: ACUTE MYELOID LEUKAEMIA RECURRENT
     Dosage: UNK
     Dates: start: 20150508, end: 20150701
  12. RANITIDINE. [Concomitant]
     Active Substance: RANITIDINE
  13. SLOW-K [Concomitant]
     Active Substance: POTASSIUM CHLORIDE
  14. MEROPENEM. [Concomitant]
     Active Substance: MEROPENEM

REACTIONS (4)
  - Off label use [None]
  - Therapy non-responder [None]
  - Product use in unapproved indication [None]
  - Acute myeloid leukaemia recurrent [Fatal]
